FAERS Safety Report 5860680-0 (Version None)
Quarter: 2008Q3

REPORT INFORMATION
  Report Type: 
  Country: None (occurrence: None)
  Receive Date: 20080827
  Receipt Date: 20071024
  Transmission Date: 20090109
  Serious: No
  Sender: FDA-Public Use
  Company Number: US-ABBOTT-07P-163-0421796-00

PATIENT
  Sex: Female
  Weight: 57.204 kg

DRUGS (4)
  1. NIASPAN [Suspect]
     Indication: BLOOD CHOLESTEROL INCREASED
     Route: 048
     Dates: start: 20071010
  2. NIASPAN [Suspect]
     Indication: BLOOD TRIGLYCERIDES INCREASED
     Route: 048
     Dates: start: 20070901, end: 20071009
  3. ATORVASTATIN CALCIUM [Concomitant]
     Indication: BLOOD CHOLESTEROL INCREASED
     Route: 048
  4. OTHER MEDICATIONS-PT. DID NOT WISH TO REPORT [Concomitant]
     Indication: DRUG USE FOR UNKNOWN INDICATION

REACTIONS (1)
  - BLOOD GLUCOSE INCREASED [None]
